FAERS Safety Report 5199952-4 (Version None)
Quarter: 2007Q1

REPORT INFORMATION
  Report Type: 
  Country: None (occurrence: None)
  Receive Date: 20070103
  Receipt Date: 20061227
  Transmission Date: 20070707
  Serious: Yes (Death)
  Sender: FDA-Public Use
  Company Number: 232706

PATIENT
  Age: 82 Year
  Sex: Female

DRUGS (10)
  1. RANIBIZUMAB (RANIBIZUMAB)PWDR + SOLVENT, INJECTION SOLN [Suspect]
     Indication: MACULAR DEGENERATION
     Dosage: INTRAVITREAL
     Dates: start: 20060302, end: 20060427
  2. COUMADIN [Concomitant]
  3. LASIX [Concomitant]
  4. TOPROL-XL [Concomitant]
  5. POTASSIUM (POTASSIUM NOS) [Concomitant]
  6. LOTENSIN [Concomitant]
  7. LANOXIN [Concomitant]
  8. ZOCOR [Concomitant]
  9. ANTIBIOTICS (NOT SPECIFIED) (ANTIBIOTICS NOS) [Concomitant]
  10. LABETALOL (LABETALOL HYDROCHLORIDE) [Concomitant]

REACTIONS (10)
  - ATRIAL FIBRILLATION [None]
  - BLOOD CULTURE POSITIVE [None]
  - BRAIN STEM HAEMORRHAGE [None]
  - CEREBRAL HAEMORRHAGE [None]
  - COUGH [None]
  - DYSPNOEA [None]
  - HEMIPARESIS [None]
  - LUNG INFILTRATION [None]
  - PYREXIA [None]
  - STAPHYLOCOCCAL INFECTION [None]
